FAERS Safety Report 8590190-1 (Version None)
Quarter: 2012Q3

REPORT INFORMATION
  Report Type: 
  Country: None (occurrence: None)
  Receive Date: 20120813
  Receipt Date: 20120703
  Transmission Date: 20120928
  Serious: Yes (Hospitalization, Other)
  Sender: FDA-Public Use
  Company Number: JP-009507513-1208JPN005077

PATIENT

DRUGS (10)
  1. PEG-INTRON [Suspect]
     Indication: HEPATITIS C
     Dosage: 1.5MCG/KG/WEEK
     Route: 058
     Dates: start: 20120508, end: 20120626
  2. XYZAL [Concomitant]
     Indication: PROPHYLAXIS
     Route: 048
     Dates: start: 20120508, end: 20120528
  3. LANSOPRAZOLE [Concomitant]
     Indication: PROPHYLAXIS
     Route: 048
     Dates: start: 20120512, end: 20120529
  4. REBETOL [Suspect]
     Indication: HEPATITIS C
     Route: 048
     Dates: start: 20120508
  5. TELAVIC [Suspect]
     Indication: HEPATITIS C
     Route: 048
     Dates: start: 20120508, end: 20120529
  6. CERNILTON [Concomitant]
     Indication: BENIGN PROSTATIC HYPERPLASIA
     Route: 048
  7. FLIVAS [Concomitant]
     Indication: BENIGN PROSTATIC HYPERPLASIA
     Route: 048
  8. REBETOL [Suspect]
     Route: 048
     Dates: start: 20120626, end: 20120702
  9. TELAVIC [Suspect]
     Route: 048
     Dates: start: 20120530, end: 20120625
  10. SELBEX [Concomitant]
     Indication: PROPHYLAXIS
     Route: 048
     Dates: start: 20120508

REACTIONS (2)
  - WHITE BLOOD CELL COUNT DECREASED [None]
  - ANAEMIA [None]
